FAERS Safety Report 7684451-8 (Version None)
Quarter: 2011Q3

REPORT INFORMATION
  Report Type: 
  Country: None (occurrence: None)
  Receive Date: 20110816
  Receipt Date: 20110805
  Transmission Date: 20111222
  Serious: No
  Sender: FDA-Public Use
  Company Number: US-BIOGENIDEC-2011BI015931

PATIENT
  Sex: Female

DRUGS (2)
  1. TYSABRI [Suspect]
     Indication: MULTIPLE SCLEROSIS
     Route: 042
     Dates: start: 20091222
  2. AVONEX [Concomitant]
     Indication: MULTIPLE SCLEROSIS
     Route: 030

REACTIONS (7)
  - NUCLEAR MAGNETIC RESONANCE IMAGING ABNORMAL [None]
  - MOBILITY DECREASED [None]
  - DRUG INEFFECTIVE [None]
  - CONFUSIONAL STATE [None]
  - DYSSTASIA [None]
  - GAIT DISTURBANCE [None]
  - BRAIN MASS [None]
